FAERS Safety Report 4284552-0 (Version None)
Quarter: 2004Q1

REPORT INFORMATION
  Report Type: 
  Country: None (occurrence: None)
  Receive Date: 20040130
  Receipt Date: 20040108
  Transmission Date: 20041129
  Serious: Yes (Life-Threatening, Hospitalization, Other)
  Sender: FDA-Public Use
  Company Number: USA031152400

PATIENT
  Age: 55 Year
  Sex: Male
  Weight: 118 kg

DRUGS (4)
  1. ZYPREXA [Suspect]
     Indication: BIPOLAR DISORDER
     Dosage: 20 MG/DAY
     Dates: start: 20030401
  2. DEPAKOTE [Concomitant]
  3. LITHIUM [Concomitant]
  4. POTASSIUM [Concomitant]

REACTIONS (16)
  - AGITATION [None]
  - COGNITIVE DISORDER [None]
  - COMA [None]
  - DELIRIUM [None]
  - DIABETES MELLITUS [None]
  - DIARRHOEA [None]
  - DISORIENTATION [None]
  - DRUG TOXICITY [None]
  - HYPERGLYCAEMIA [None]
  - MENTAL STATUS CHANGES [None]
  - NEUROLEPTIC MALIGNANT SYNDROME [None]
  - POLYDIPSIA [None]
  - POLYURIA [None]
  - PYREXIA [None]
  - RESPIRATORY FAILURE [None]
  - VOMITING [None]
